FAERS Safety Report 19442927 (Version 3)
Quarter: 2022Q2

REPORT INFORMATION
  Report Type: Report from Study
  Country: FR (occurrence: None)
  Receive Date: 20210621
  Receipt Date: 20220606
  Transmission Date: 20220720
  Serious: Yes (Hospitalization)
  Sender: FDA-Public Use
  Company Number: FR-MERCK HEALTHCARE KGAA-9246515

PATIENT
  Age: 48 Year
  Sex: Male

DRUGS (3)
  1. AVELUMAB [Suspect]
     Active Substance: AVELUMAB
     Indication: Neuroendocrine carcinoma of the skin
     Dosage: D1
     Route: 042
     Dates: start: 20210602, end: 20210602
  2. DOMATINOSTAT [Suspect]
     Active Substance: DOMATINOSTAT
     Indication: Neuroendocrine carcinoma of the skin
     Dosage: D1
     Route: 048
     Dates: start: 20210602, end: 20210606
  3. DOMPERIDONE [Concomitant]
     Active Substance: DOMPERIDONE
     Indication: Vomiting
     Dates: start: 20210520

REACTIONS (1)
  - Adrenocorticotropic hormone deficiency [Not Recovered/Not Resolved]

NARRATIVE: CASE EVENT DATE: 20210608
